FAERS Safety Report 10215904 (Version 2)
Quarter: 2014Q2

REPORT INFORMATION
  Report Type: Spontaneous
  Country: JP (occurrence: JP)
  Receive Date: 20140604
  Receipt Date: 20140604
  Transmission Date: 20141212
  Serious: Yes (Hospitalization)
  Sender: FDA-Public Use
  Company Number: JP-AMGEN INC.-JPNSP2014033494

PATIENT
  Age: 68 Year
  Sex: Female
  Weight: 54 kg

DRUGS (10)
  1. NESP [Suspect]
     Indication: NEPHROGENIC ANAEMIA
     Dosage: 60 MUG, QD
     Route: 058
     Dates: start: 20140320, end: 20140320
  2. AMLODIN [Suspect]
     Indication: HYPERTENSION
     Dosage: 5 MG, BID
     Route: 048
     Dates: start: 20140219, end: 20140507
  3. LIPITOR [Suspect]
     Indication: DYSLIPIDAEMIA
     Dosage: 5 MG, QD
     Route: 048
     Dates: start: 20140322, end: 20140401
  4. TAKEPRON [Suspect]
     Indication: GASTROOESOPHAGEAL REFLUX DISEASE
     Dosage: 15 MG, QD
     Route: 048
     Dates: start: 20140219, end: 20140401
  5. FEBURIC [Suspect]
     Indication: HYPERURICAEMIA
     Dosage: 10 MG, QD
     Route: 048
     Dates: start: 20140219, end: 20140322
  6. EPOETIN ALFA [Concomitant]
  7. EQUA [Concomitant]
     Indication: DIABETES MELLITUS
     Dosage: 50 MG, QD
     Route: 048
     Dates: end: 20140401
  8. KALIMATE [Concomitant]
     Indication: HYPERKALAEMIA
     Dosage: 5 G, BID
     Route: 048
     Dates: start: 20140219, end: 20140324
  9. JUSO [Concomitant]
     Indication: METABOLIC ACIDOSIS
     Dosage: 1 G, QD
     Route: 048
     Dates: start: 20140219, end: 20140423
  10. CALTAN [Concomitant]
     Indication: HYPERPHOSPHATAEMIA
     Dosage: 500 MG, BID
     Route: 048
     Dates: start: 20140306, end: 20140430

REACTIONS (1)
  - White blood cell count decreased [Recovering/Resolving]
